FAERS Safety Report 9315668 (Version 1)
Quarter: 2013Q2

REPORT INFORMATION
  Report Type: Other
  Country: NO (occurrence: NO)
  Receive Date: 20130529
  Receipt Date: 20130529
  Transmission Date: 20140414
  Serious: Yes (Hospitalization)
  Sender: FDA-Public Use
  Company Number: NO-WATSON-2013-09666

PATIENT
  Age: 38 Year
  Sex: Female

DRUGS (2)
  1. TERBINAFINE HYDROCHLORIDE (UNKNOWN) [Suspect]
     Indication: ONYCHOMYCOSIS
     Dosage: 250 MG, DAILY
     Route: 048
     Dates: start: 201301, end: 20130322
  2. AERIUS                             /01009701/ [Concomitant]
     Indication: ALLERGY TO ANIMAL
     Dosage: 5 MG, EVERY 2 WEEKS
     Route: 065
     Dates: start: 201301

REACTIONS (1)
  - Drug-induced liver injury [Recovered/Resolved]
